FAERS Safety Report 9652907 (Version 1)
Quarter: 2013Q4

REPORT INFORMATION
  Report Type: Spontaneous
  Country: IT (occurrence: IT)
  Receive Date: 20131029
  Receipt Date: 20131029
  Transmission Date: 20140711
  Serious: Yes (Hospitalization)
  Sender: FDA-Public Use
  Company Number: IT-TEVA-439080ISR

PATIENT
  Age: 79 Year
  Sex: Male
  Weight: 76 kg

DRUGS (6)
  1. LEVOFLOXACINA [Suspect]
     Indication: INFECTION
     Dosage: 500 MILLIGRAM DAILY;
     Route: 048
     Dates: start: 20130810, end: 20130812
  2. GLICOMET 400MG+2.5MG [Interacting]
     Indication: TYPE 2 DIABETES MELLITUS
     Dosage: 2 DOSAGE FORMS DAILY;
     Route: 048
     Dates: start: 20120101, end: 20130812
  3. TRIATEC HCT 5MG+25MG [Concomitant]
     Indication: CARDIAC DISORDER
     Dates: start: 20120101, end: 20130812
  4. CARDURA 2MG [Concomitant]
     Indication: CARDIOMYOPATHY
     Dates: start: 20120101, end: 20130812
  5. OSIPINE 20MG [Concomitant]
     Indication: CARDIOMYOPATHY
     Dosage: MODIFIED RELEASE CAPSULE
  6. SIMVASTATINA [Concomitant]
     Dates: start: 20120101, end: 20130812

REACTIONS (3)
  - Aphasia [Recovered/Resolved]
  - Hypoglycaemia [Recovered/Resolved]
  - Drug interaction [Recovered/Resolved]
